FAERS Safety Report 8800298 (Version 1)
Quarter: 2012Q4

REPORT INFORMATION
  Report Type: Report from Study
  Country: HU (occurrence: HU)
  Receive Date: 20120921
  Receipt Date: 20120921
  Transmission Date: 20130627
  Serious: Yes (Hospitalization, Other)
  Sender: FDA-Public Use
  Company Number: HU-ROCHE-1126027

PATIENT
  Sex: Male

DRUGS (2)
  1. XELODA [Suspect]
     Indication: COLON NEOPLASM
     Route: 048
     Dates: start: 20081209
  2. XELODA [Suspect]
     Route: 048
     Dates: end: 200910

REACTIONS (5)
  - Surgery [Unknown]
  - Thrombosis [Unknown]
  - Arrhythmia [Unknown]
  - Computerised tomogram abnormal [Unknown]
  - Drug ineffective [Unknown]
